FAERS Safety Report 13177050 (Version 2)
Quarter: 2017Q3

REPORT INFORMATION
  Report Type: Report from Study
  Country: US (occurrence: US)
  Receive Date: 20170201
  Receipt Date: 20170731
  Transmission Date: 20171127
  Serious: No
  Sender: FDA-Public Use
  Company Number: US-EXELIXIS-CABO-16006979

PATIENT
  Sex: Female

DRUGS (1)
  1. CABOMETYX [Suspect]
     Active Substance: CABOZANTINIB S-MALATE
     Indication: RENAL CANCER
     Dosage: 60 MG, QD
     Route: 048
     Dates: start: 20160701

REACTIONS (9)
  - Dry skin [Unknown]
  - Skin ulcer [Unknown]
  - Nasal discomfort [Unknown]
  - Skin sensitisation [Unknown]
  - Photophobia [Unknown]
  - Rash generalised [Unknown]
  - Diarrhoea [Unknown]
  - Lip disorder [Unknown]
  - Fatigue [Unknown]
